FAERS Safety Report 16397773 (Version 4)
Quarter: 2019Q3

REPORT INFORMATION
  Report Type: Spontaneous
  Country: US (occurrence: US)
  Receive Date: 20190606
  Receipt Date: 20190927
  Transmission Date: 20191004
  Serious: Yes (Other)
  Sender: FDA-Public Use
  Company Number: US-PFIZER INC-2019237567

PATIENT
  Age: 49 Year
  Sex: Female

DRUGS (6)
  1. CHANTIX [Suspect]
     Active Substance: VARENICLINE TARTRATE
     Dosage: INCREASED TO 1 MG, 2X/DAY
     Route: 048
     Dates: start: 20080420, end: 20080508
  2. NITRO [NITROFURANTOIN] [Concomitant]
     Active Substance: NITROFURANTOIN
     Indication: CORONARY ARTERY DISEASE
     Dosage: UNK, AS NEEDED
     Dates: start: 20080410
  3. CHANTIX [Suspect]
     Active Substance: VARENICLINE TARTRATE
     Dosage: INCREASED TO 0.5 MG, 2X/DAY FOR 7 DAYS
     Route: 048
     Dates: start: 20080413, end: 20080419
  4. CHANTIX [Suspect]
     Active Substance: VARENICLINE TARTRATE
     Dosage: UNK
     Route: 048
     Dates: start: 200905, end: 200905
  5. CHANTIX [Suspect]
     Active Substance: VARENICLINE TARTRATE
     Dosage: 0.5 MG, 2X/DAY
     Route: 048
     Dates: start: 2014
  6. CHANTIX [Suspect]
     Active Substance: VARENICLINE TARTRATE
     Indication: SMOKING CESSATION THERAPY
     Dosage: 0.5 MG, DAILY FOR 3 DAYS
     Route: 048
     Dates: start: 20080410, end: 20080412

REACTIONS (6)
  - Homicidal ideation [Recovered/Resolved]
  - Diarrhoea [Recovered/Resolved]
  - Nightmare [Recovered/Resolved]
  - Abnormal behaviour [Recovered/Resolved]
  - Personality change [Recovered/Resolved]
  - Anger [Recovered/Resolved]

NARRATIVE: CASE EVENT DATE: 2008
